FAERS Safety Report 7235298-8 (Version None)
Quarter: 2011Q1

REPORT INFORMATION
  Report Type: 
  Country: None (occurrence: None)
  Receive Date: 20110110
  Receipt Date: 20110104
  Transmission Date: 20110831
  Serious: Yes (Other)
  Sender: FDA-Public Use
  Company Number: 1000018029

PATIENT
  Age: 15 Year
  Sex: Male

DRUGS (1)
  1. CELEXA [Suspect]
     Dosage: 20 MG (20 MG, 1 IN 1 D), ORAL
     Route: 048
     Dates: start: 20080731, end: 20080803

REACTIONS (12)
  - MEMORY IMPAIRMENT [None]
  - ANGER [None]
  - FEELING ABNORMAL [None]
  - JUDGEMENT IMPAIRED [None]
  - AGITATION [None]
  - RESTLESSNESS [None]
  - SUICIDE ATTEMPT [None]
  - PARANOIA [None]
  - IMPRISONMENT [None]
  - PHYSICAL ASSAULT [None]
  - ENERGY INCREASED [None]
  - THINKING ABNORMAL [None]
